FAERS Safety Report 7184544-8 (Version None)
Quarter: 2010Q4

REPORT INFORMATION
  Report Type: 
  Country: None (occurrence: None)
  Receive Date: 20101222
  Receipt Date: 20101214
  Transmission Date: 20110411
  Serious: Yes (Death)
  Sender: FDA-Public Use
  Company Number: ES-ACTELION-A-CH2010-42796

PATIENT
  Age: 63 Year
  Sex: Female

DRUGS (1)
  1. BOSENTAN TABLET UNK MG DUO EU [Suspect]
     Indication: SKIN ULCER
     Dosage: UNK
     Route: 048
     Dates: start: 20081215

REACTIONS (1)
  - DEATH [None]
